FAERS Safety Report 13601700 (Version 1)
Quarter: 2017Q2

REPORT INFORMATION
  Report Type: Spontaneous
  Country: US (occurrence: US)
  Receive Date: 20170601
  Receipt Date: 20170601
  Transmission Date: 20170830
  Serious: Yes (Other)
  Sender: FDA-Public Use
  Company Number: US-SUNOVION-2017SUN002305

PATIENT
  Age: 28 Year

DRUGS (2)
  1. LATUDA [Suspect]
     Active Substance: LURASIDONE HYDROCHLORIDE
     Indication: BIPOLAR I DISORDER
     Dosage: UNK
     Route: 048
  2. ANTIPSYCHOTICS [Concomitant]
     Active Substance: UNSPECIFIED INGREDIENT

REACTIONS (7)
  - Hypersomnia [Not Recovered/Not Resolved]
  - Emotional poverty [Unknown]
  - Aggression [Unknown]
  - Feeling abnormal [Unknown]
  - Anger [Unknown]
  - Apathy [Unknown]
  - Somnolence [Unknown]
